FAERS Safety Report 15396150 (Version 1)
Quarter: 2018Q3

REPORT INFORMATION
  Report Type: Spontaneous
  Country: US (occurrence: US)
  Receive Date: 20180912
  Receipt Date: 20180912
  Transmission Date: 20181010
  Serious: Yes (Disabling, Other)
  Sender: FDA-Public Use
  Company Number: None

PATIENT
  Age: 79 Year
  Sex: Female
  Weight: 81 kg

DRUGS (13)
  1. CENTRUM WOMEN SILVER VITAMIN [Concomitant]
  2. CENTRUM WOMEN SILVER VITAMIN [Concomitant]
  3. ROSUVASTATIN CALCIUM. [Suspect]
     Active Substance: ROSUVASTATIN CALCIUM
     Indication: BLOOD CHOLESTEROL INCREASED
     Dosage: ?          QUANTITY:1 DF DOSAGE FORM;?
     Route: 048
     Dates: start: 20180420, end: 20180424
  4. AREAS 2 [Concomitant]
  5. LOSARTIN POTASSION [Concomitant]
  6. LEXAPRO (GENERIC) [Concomitant]
  7. SYNTHOID (BRAND) [Concomitant]
  8. LEXAPRO (GENERIC) [Concomitant]
  9. CO ENZGYME Q 10 [Concomitant]
  10. SYNTHROID (BRAND) [Concomitant]
  11. CO ENZGYME Q 10 [Concomitant]
  12. LOSARTIN POTASSIUM [Concomitant]
  13. AREAS 2 [Concomitant]

REACTIONS (2)
  - Product substitution issue [None]
  - Dyspepsia [None]

NARRATIVE: CASE EVENT DATE: 20180420
